FAERS Safety Report 16694291 (Version 1)
Quarter: 2019Q3

REPORT INFORMATION
  Report Type: Spontaneous
  Country: US (occurrence: US)
  Receive Date: 20190812
  Receipt Date: 20190812
  Transmission Date: 20191004
  Serious: Yes (Other)
  Sender: FDA-Public Use
  Company Number: US-MALLINCKRODT-T201905607

PATIENT
  Age: 64 Year
  Sex: Male

DRUGS (2)
  1. H.P. ACTHAR [Suspect]
     Active Substance: CORTICOTROPIN
     Indication: NEPHROTIC SYNDROME
     Dosage: 40 IU TWICE WEEKLY
     Route: 058
     Dates: start: 20190605
  2. HUMIRA [Concomitant]
     Active Substance: ADALIMUMAB
     Indication: PRODUCT USED FOR UNKNOWN INDICATION
     Dosage: 40 MG/0.8 ML PEN
     Route: 065
     Dates: start: 20180117

REACTIONS (1)
  - Aphonia [Unknown]

NARRATIVE: CASE EVENT DATE: 2019
